FAERS Safety Report 4294377-8 (Version None)
Quarter: 2004Q1

REPORT INFORMATION
  Report Type: 
  Country: None (occurrence: None)
  Receive Date: 20040213
  Receipt Date: 20020906
  Transmission Date: 20041129
  Serious: Yes (Death)
  Sender: FDA-Public Use
  Company Number: WAES 0209GBR00084

PATIENT
  Age: 59 Year
  Sex: Male
  Weight: 80 kg

DRUGS (5)
  1. CALCIUM CARBONATE AND CHOLECALCIFEROL [Concomitant]
     Route: 048
  2. FOLIC ACID [Concomitant]
     Route: 048
  3. INDOCIN [Suspect]
     Indication: PERICARDITIS
     Route: 048
     Dates: start: 20020717, end: 20020815
  4. LANSOPRAZOLE [Concomitant]
     Route: 048
  5. PREDNISOLONE [Concomitant]
     Route: 048

REACTIONS (4)
  - APLASTIC ANAEMIA [None]
  - HAEMOGLOBIN DECREASED [None]
  - PLATELET COUNT DECREASED [None]
  - WHITE BLOOD CELL COUNT DECREASED [None]
